FAERS Safety Report 21916449 (Version 1)
Quarter: 2023Q1

REPORT INFORMATION
  Report Type: Spontaneous
  Country: None (occurrence: GB)
  Receive Date: 20230126
  Receipt Date: 20230126
  Transmission Date: 20230417
  Serious: Yes (Life-Threatening, Hospitalization)
  Sender: FDA-Public Use
  Company Number: GB-B.Braun Medical Inc.-2136931

PATIENT
  Age: 84 Year
  Sex: Male

DRUGS (16)
  1. DEXTROSE [Suspect]
     Active Substance: DEXTROSE
  2. ELECTROLYTES NOS\MINERALS\SORBITOL [Suspect]
     Active Substance: ELECTROLYTES NOS\MINERALS\SORBITOL
  3. ALANINE [Suspect]
     Active Substance: ALANINE
  4. ARGININE HYDROCHLORIDE [Suspect]
     Active Substance: ARGININE HYDROCHLORIDE
  5. AMINO ACIDS, SOURCE UNSPECIFIED [Suspect]
     Active Substance: AMINO ACIDS, SOURCE UNSPECIFIED
  6. CALCIUM CHLORIDE [Suspect]
     Active Substance: CALCIUM CHLORIDE
  7. GLUCOSE (DEXTROSE MONOHYDRATE) [Suspect]
     Active Substance: DEXTROSE MONOHYDRATE
  8. MAGNESIUM SULFATE [Suspect]
     Active Substance: MAGNESIUM SULFATE
  9. OLIVE OIL [Suspect]
     Active Substance: OLIVE OIL
  10. SOYBEAN OIL [Suspect]
     Active Substance: SOYBEAN OIL
  11. POTASSIUM CHLORIDE [Suspect]
     Active Substance: POTASSIUM CHLORIDE
  12. SODIUM CHLORIDE [Suspect]
     Active Substance: SODIUM CHLORIDE
  13. SODIUM GLYCEROPHOSPHATE [Suspect]
     Active Substance: SODIUM GLYCEROPHOSPHATE
  14. VITAMINS [Suspect]
     Active Substance: VITAMINS
  15. ERGOCALCIFEROL\PHYTONADIONE\RETINOL\TOCOPHEROL [Suspect]
     Active Substance: ERGOCALCIFEROL\PHYTONADIONE\RETINOL\TOCOPHEROL
  16. WATER [Suspect]
     Active Substance: WATER

REACTIONS (4)
  - Malaise [Unknown]
  - Cardiac arrest [Unknown]
  - Pyrexia [Unknown]
  - Sepsis [Unknown]
